FAERS Safety Report 9266796 (Version 3)
Quarter: 2013Q3

REPORT INFORMATION
  Report Type: Spontaneous
  Country: DE (occurrence: DE)
  Receive Date: 20130502
  Receipt Date: 20130729
  Transmission Date: 20140515
  Serious: Yes (Hospitalization, Other)
  Sender: FDA-Public Use
  Company Number: DE-BRISTOL-MYERS SQUIBB COMPANY-18825877

PATIENT
  Age: 63 Year
  Sex: Male

DRUGS (6)
  1. BYDUREON [Suspect]
     Indication: TYPE 2 DIABETES MELLITUS
     Dates: start: 201211
  2. MICARDIS [Concomitant]
  3. TERBINAFINE [Concomitant]
     Indication: ONYCHOMYCOSIS
  4. SERTRALINE [Concomitant]
  5. METFORMIN [Concomitant]
     Dosage: 1000 IN THE MORNING AND 1000 IN THE EVENING
  6. SITAGLIPTIN PHOSPHATE [Concomitant]

REACTIONS (2)
  - Renal cell carcinoma [Recovering/Resolving]
  - Weight decreased [Unknown]
